FAERS Safety Report 5077802-4 (Version None)
Quarter: 2006Q3

REPORT INFORMATION
  Report Type: 
  Country: None (occurrence: None)
  Receive Date: 20060810
  Receipt Date: 20060804
  Transmission Date: 20061208
  Serious: Yes (Hospitalization)
  Sender: FDA-Public Use
  Company Number: DE-MERCK-0608DEU00081

PATIENT
  Age: 66 Year
  Sex: Female
  Weight: 60 kg

DRUGS (13)
  1. SINGULAIR [Suspect]
     Indication: ASTHMA
     Route: 048
  2. SALMETEROL [Concomitant]
     Indication: ASTHMA
     Route: 055
  3. FLUTICASONE PROPIONATE [Concomitant]
     Indication: ASTHMA
     Route: 055
  4. THEOPHYLLINE [Concomitant]
     Indication: ASTHMA
     Route: 065
  5. IPRATROPIUM BROMIDE [Concomitant]
     Indication: ASTHMA
     Route: 065
  6. IPRATROPIUM BROMIDE [Concomitant]
     Route: 065
  7. FENOTEROL [Concomitant]
     Indication: ASTHMA
     Route: 065
  8. IPRATROPIUM BROMIDE [Concomitant]
     Route: 055
  9. PREDNISOLONE [Concomitant]
     Indication: ASTHMA
     Route: 048
     Dates: start: 19980101
  10. PREDNISOLONE [Concomitant]
     Route: 048
     Dates: start: 20010101
  11. PREDNISOLONE [Concomitant]
     Route: 048
     Dates: start: 20010101, end: 20011001
  12. CORTICOSTEROIDS (UNSPECIFIED) [Suspect]
     Indication: ASTHMA
     Route: 048
     Dates: start: 19790101
  13. INTERFERON ALFACON-1 [Suspect]
     Indication: ASTHMA
     Route: 058
     Dates: start: 20010501

REACTIONS (7)
  - DRUG INEFFECTIVE [None]
  - EOSINOPHIL COUNT INCREASED [None]
  - LETHARGY [None]
  - OSTEOPOROSIS [None]
  - PYREXIA [None]
  - REVERSIBLE AIRWAYS OBSTRUCTION [None]
  - SPINAL FRACTURE [None]
